FAERS Safety Report 7135741-9 (Version None)
Quarter: 2010Q4

REPORT INFORMATION
  Report Type: 
  Country: None (occurrence: None)
  Receive Date: 20101203
  Receipt Date: 20101123
  Transmission Date: 20110411
  Serious: Yes (Hospitalization, Other)
  Sender: FDA-Public Use
  Company Number: BR-GILEAD-2010-0033789

PATIENT
  Sex: Male
  Weight: 53 kg

DRUGS (6)
  1. TENOFOVIR DISOPROXIL FUMARATE [Suspect]
     Indication: HIV INFECTION
     Dates: start: 20101020
  2. RALTEGRAVIR [Suspect]
     Indication: HIV INFECTION
     Dates: start: 20101020
  3. LAMIVUDINE [Suspect]
     Indication: HIV INFECTION
  4. RIFAMPIN [Concomitant]
     Indication: TUBERCULOSIS
     Dates: start: 20101104
  5. ISONIAZID [Concomitant]
     Indication: TUBERCULOSIS
     Dates: start: 20101104
  6. COTRIMOXAZOLE [Concomitant]
     Indication: INFECTION PROPHYLAXIS
     Dates: start: 20101003

REACTIONS (1)
  - DEEP VEIN THROMBOSIS [None]
